FAERS Safety Report 15003643 (Version 1)
Quarter: 2018Q2

REPORT INFORMATION
  Report Type: Report from Study
  Country: ES (occurrence: ES)
  Receive Date: 20180613
  Receipt Date: 20180613
  Transmission Date: 20180711
  Serious: Yes (Hospitalization, Other)
  Sender: FDA-Public Use
  Company Number: ES-TEVA-2018-ES-906203

PATIENT
  Age: 91 Year
  Sex: Female

DRUGS (6)
  1. MARIXINO 20 MG COMPRIMIDOS RECUBIERTOS CON PELICULA [Concomitant]
     Indication: COGNITIVE DISORDER
  2. ADIRO 100 MG COMPRIMIDOS GASTRORRESISTENTES EFG [Interacting]
     Active Substance: ASPIRIN
     Indication: CEREBROVASCULAR ACCIDENT
     Dosage: 100 MILLIGRAM DAILY;
     Route: 048
     Dates: start: 2017, end: 20171129
  3. QUETIAPINA 100 MG COMPRIMIDO [Concomitant]
     Dosage: 100 MILLIGRAM DAILY;
  4. DIGOXINA (770A) [Concomitant]
  5. SERTRALINE [Suspect]
     Active Substance: SERTRALINE HYDROCHLORIDE
     Dosage: 50 MILLIGRAM DAILY;
     Dates: start: 2017
  6. FOLI-DOCE [Concomitant]
     Active Substance: CYANOCOBALAMIN\FOLIC ACID

REACTIONS (2)
  - Haematoma [Recovering/Resolving]
  - Drug interaction [Unknown]

NARRATIVE: CASE EVENT DATE: 201711
